FAERS Safety Report 6914097-8 (Version None)
Quarter: 2010Q3

REPORT INFORMATION
  Report Type: 
  Country: None (occurrence: None)
  Receive Date: 20100809
  Receipt Date: 20100803
  Transmission Date: 20110219
  Serious: Yes (Other)
  Sender: FDA-Public Use
  Company Number: US-BRISTOL-MYERS SQUIBB COMPANY-15224538

PATIENT
  Age: 67 Year
  Sex: Male

DRUGS (5)
  1. COUMADIN [Suspect]
     Dosage: UNK - 2009 2009-ONG
     Route: 065
  2. MULTAQ [Suspect]
     Indication: ATRIAL FIBRILLATION
     Dosage: TAB JAN10 WITH PEANUT BUTTER
     Route: 048
     Dates: start: 20090629
  3. ALCOHOL [Suspect]
     Route: 065
     Dates: end: 20100521
  4. AVAPRO [Concomitant]
  5. LIPITOR [Concomitant]

REACTIONS (2)
  - ATRIAL FIBRILLATION [None]
  - INTERNATIONAL NORMALISED RATIO INCREASED [None]
